FAERS Safety Report 4629674-7 (Version None)
Quarter: 2005Q2

REPORT INFORMATION
  Report Type: 
  Country: None (occurrence: None)
  Receive Date: 20050406
  Receipt Date: 20050318
  Transmission Date: 20051028
  Serious: Yes (Death, Other)
  Sender: FDA-Public Use
  Company Number: JP_050205787

PATIENT
  Age: 72 Year
  Sex: Female
  Weight: 50 kg

DRUGS (6)
  1. GEMZAR [Suspect]
     Dosage: 1000 MG/M2 OTHER
     Dates: start: 20020314, end: 20020408
  2. THALIDOMIDE (THALIDOMIDE PHARMION) [Concomitant]
  3. CELECOXIB [Concomitant]
  4. MS CONTIN [Concomitant]
  5. PREDNISOLONE [Concomitant]
  6. EBASTEL (EBASTINE) [Concomitant]

REACTIONS (7)
  - BRONCHITIS [None]
  - CONSTIPATION [None]
  - LEUKOPENIA [None]
  - MALIGNANT NEOPLASM PROGRESSION [None]
  - SPINAL OSTEOARTHRITIS [None]
  - VENA CAVA THROMBOSIS [None]
  - VOMITING [None]
